FAERS Safety Report 7523635-6 (Version None)
Quarter: 2011Q2

REPORT INFORMATION
  Report Type: 
  Country: None (occurrence: None)
  Receive Date: 20110601
  Receipt Date: 20110601
  Transmission Date: 20111010
  Serious: Yes (Hospitalization)
  Sender: FDA-Public Use
  Company Number: None

PATIENT
  Sex: Male
  Weight: 112.9 kg

DRUGS (9)
  1. METOPROLOL SUCCINATE [Concomitant]
  2. AMIODARONE HCL [Suspect]
     Indication: ATRIAL FIBRILLATION
     Dosage: 200 MG BID PO
     Route: 048
  3. ISOSORBIDE DINITRATE [Concomitant]
  4. LISINOPRIL [Concomitant]
  5. LOVASTATIN [Concomitant]
  6. WARFARIN SODIUM [Suspect]
     Indication: ATRIAL FIBRILLATION
     Dosage: 10MG DAILY PO
     Route: 048
  7. LEVOTHYROXINE SODIUM [Concomitant]
  8. FUROSEMIDE [Concomitant]
  9. ASPIRIN [Concomitant]

REACTIONS (2)
  - MUSCLE HAEMORRHAGE [None]
  - INTERNATIONAL NORMALISED RATIO INCREASED [None]
